FAERS Safety Report 5482222-4 (Version None)
Quarter: 2007Q4

REPORT INFORMATION
  Report Type: 
  Country: None (occurrence: None)
  Receive Date: 20071011
  Receipt Date: 20071003
  Transmission Date: 20080405
  Serious: Yes (Hospitalization)
  Sender: FDA-Public Use
  Company Number: CA-JNJFOC-20070801951

PATIENT
  Sex: Male
  Weight: 88.5 kg

DRUGS (4)
  1. REMICADE [Suspect]
     Indication: PSORIATIC ARTHROPATHY
     Route: 042
  2. BENADRYL [Concomitant]
     Indication: PREMEDICATION
  3. TYLENOL (CAPLET) [Concomitant]
     Indication: PREMEDICATION
     Route: 048
  4. SOLU-CORTEF [Concomitant]
     Indication: PREMEDICATION
     Route: 042

REACTIONS (3)
  - CHEST DISCOMFORT [None]
  - DYSPNOEA [None]
  - HYPOAESTHESIA [None]
